FAERS Safety Report 22340236 (Version 1)
Quarter: 2023Q2

REPORT INFORMATION
  Report Type: Spontaneous
  Country: US (occurrence: US)
  Receive Date: 20230518
  Receipt Date: 20230518
  Transmission Date: 20230722
  Serious: No
  Sender: FDA-Public Use
  Company Number: US-BAYER-2023A060803

PATIENT
  Sex: Female

DRUGS (1)
  1. MIRALAX [Suspect]
     Active Substance: POLYETHYLENE GLYCOL 3350
     Indication: Colonoscopy
     Dosage: ONE DOSAGE FORM 1X/DAY
     Dates: start: 20230411

REACTIONS (7)
  - Incorrect product administration duration [None]
  - Therapeutic product effect incomplete [None]
  - Rebound effect [Unknown]
  - Frequent bowel movements [Unknown]
  - Diarrhoea [Unknown]
  - Frequent bowel movements [Unknown]
  - Off label use [None]

NARRATIVE: CASE EVENT DATE: 20230411
